FAERS Safety Report 4638823-6 (Version None)
Quarter: 2005Q2

REPORT INFORMATION
  Report Type: 
  Country: None (occurrence: None)
  Receive Date: 20050418
  Receipt Date: 20050418
  Transmission Date: 20051028
  Serious: Yes (Hospitalization)
  Sender: FDA-Public Use
  Company Number: None

PATIENT
  Age: 69 Year
  Sex: Female
  Weight: 103 kg

DRUGS (6)
  1. AVANDIA [Suspect]
     Indication: DIABETES MELLITUS
     Dosage: 8MG DAILY ORAL
     Route: 048
     Dates: start: 20040101, end: 20050413
  2. COUMADIN [Concomitant]
  3. DIGOXIN [Concomitant]
  4. CARDIZEM [Concomitant]
  5. TOPROL-XL [Concomitant]
  6. NOVOLIN [Concomitant]

REACTIONS (4)
  - DYSPNOEA [None]
  - OEDEMA PERIPHERAL [None]
  - PLEURAL EFFUSION [None]
  - SURGICAL PROCEDURE REPEATED [None]
